FAERS Safety Report 15140955 (Version 1)
Quarter: 2018Q3

REPORT INFORMATION
  Report Type: Spontaneous
  Country: US (occurrence: US)
  Receive Date: 20180618
  Receipt Date: 20180618
  Transmission Date: 20181010
  Serious: Yes (Life-Threatening)
  Sender: FDA-Public Use
  Company Number: None

PATIENT
  Age: 65 Year
  Sex: Female

DRUGS (4)
  1. PRADAXA [Suspect]
     Active Substance: DABIGATRAN ETEXILATE MESYLATE
     Indication: ATRIAL FIBRILLATION
     Dosage: ?          QUANTITY:1 TABLET(S);OTHER FREQUENCY:UNKNOWN;?
     Route: 048
  2. REFLUX MEDICATIONS [Concomitant]
  3. HEART MEDICATIONS [Concomitant]
     Active Substance: UNSPECIFIED INGREDIENT
  4. SEIZURE MEDICATIONS [Concomitant]

REACTIONS (4)
  - Iatrogenic injury [None]
  - Haematoma [None]
  - Peritoneal haemorrhage [None]
  - Gallbladder operation [None]

NARRATIVE: CASE EVENT DATE: 20170723
